FAERS Safety Report 6731686-4 (Version None)
Quarter: 2010Q2

REPORT INFORMATION
  Report Type: 
  Country: None (occurrence: None)
  Receive Date: 20100519
  Receipt Date: 20100507
  Transmission Date: 20101027
  Serious: Yes (Hospitalization, Other)
  Sender: FDA-Public Use
  Company Number: PHHY2008BR14022

PATIENT
  Age: 84 Year
  Sex: Female
  Weight: 70 kg

DRUGS (4)
  1. EXELON [Suspect]
     Indication: DEMENTIA
     Dosage: 4.5 MG CAP/MORNING
     Dates: start: 20080101
  2. EXELON [Suspect]
     Dosage: 4.5 MG CAP. IN AFTERNOON
  3. EXELON [Suspect]
     Dosage: 4.5 MG, UNK
     Dates: end: 20080710
  4. ATENOLOL [Concomitant]
     Indication: HYPERTENSION
     Dosage: 1 DF, IN MORNING
     Route: 048

REACTIONS (7)
  - ABDOMINAL PAIN UPPER [None]
  - DIARRHOEA [None]
  - EMOTIONAL DISORDER [None]
  - GASTROINTESTINAL DISORDER [None]
  - INTESTINAL MASS [None]
  - UMBILICAL HERNIA [None]
  - VOMITING [None]
